FAERS Safety Report 20699893 (Version 1)
Quarter: 2022Q2

REPORT INFORMATION
  Report Type: Spontaneous
  Country: FR (occurrence: FR)
  Receive Date: 20220412
  Receipt Date: 20220412
  Transmission Date: 20220720
  Serious: Yes (Other)
  Sender: FDA-Public Use
  Company Number: FR-SAMSUNG BIOEPIS-SB-2022-05302

PATIENT
  Age: 44 Year
  Sex: Female

DRUGS (3)
  1. ADALIMUMAB [Suspect]
     Active Substance: ADALIMUMAB
     Indication: Birdshot chorioretinopathy
     Dosage: 40 MILLIGRAM, Q2W
     Route: 065
  2. PREDNISONE [Concomitant]
     Active Substance: PREDNISONE
     Indication: Birdshot chorioretinopathy
     Dosage: 20 MILLIGRAM
     Route: 065
  3. PREDNISONE [Concomitant]
     Active Substance: PREDNISONE
     Dosage: 1 DOSAGE FORM, QD (SEVEN TO TEN MG, QD)
     Route: 065

REACTIONS (2)
  - Birdshot chorioretinopathy [Recovered/Resolved]
  - Off label use [Unknown]
